FAERS Safety Report 7322363 (Version 3)
Quarter: 2014Q1

REPORT INFORMATION
  Report Type: Spontaneous
  Country: US (occurrence: None)
  Receive Date: 20100225
  Receipt Date: 20140107
  Transmission Date: 20141002
  Serious: Yes (Hospitalization)
  Sender: FDA-Public Use
  Company Number: 2010US000517

PATIENT
  Age: 4 Year
  Sex: Female
  Weight: 16 kg

DRUGS (3)
  1. TACROLIMUS [Suspect]
     Indication: DERMATITIS ATOPIC
     Dosage: 0.1%, BID, TOPICAL
     Route: 061
     Dates: start: 20070910, end: 200905
  2. BENADRYL /00000402/ (DIPHENYDRAMINE HYDROCHLORIDE) [Concomitant]
  3. TRIAMCINOLONE (TRIAMCINOLONE) [Concomitant]

REACTIONS (4)
  - Status asthmaticus [None]
  - Pneumonia [None]
  - Off label use [None]
  - Asthma [None]
